FAERS Safety Report 4290002-0 (Version None)
Quarter: 2004Q1

REPORT INFORMATION
  Report Type: 
  Country: None (occurrence: None)
  Receive Date: 20040209
  Receipt Date: 20040130
  Transmission Date: 20041129
  Serious: No
  Sender: FDA-Public Use
  Company Number: 04H-163-0249035-00

PATIENT
  Age: 25 Year
  Sex: Female

DRUGS (1)
  1. DEMEROL [Suspect]
     Indication: SURGERY
     Dosage: 50 MG, ONCE, INTRAVENOUS
     Route: 042
     Dates: start: 20040114, end: 20040114

REACTIONS (2)
  - ANGIONEUROTIC OEDEMA [None]
  - URTICARIA [None]
